FAERS Safety Report 6496794-4 (Version None)
Quarter: 2009Q4

REPORT INFORMATION
  Report Type: 
  Country: None (occurrence: None)
  Receive Date: 20091125
  Receipt Date: 20090330
  Transmission Date: 20100525
  Serious: Yes (Hospitalization)
  Sender: FDA-Public Use
  Company Number: 2009BH005270

PATIENT
  Age: 50 Year
  Sex: Female

DRUGS (15)
  1. DIANEAL [Suspect]
     Indication: PERITONEAL DIALYSIS
     Dosage: 10 L ; EVERY DAY ; IP
     Route: 033
     Dates: start: 20071203
  2. FOLIC ACID [Concomitant]
  3. GENTAMICIN [Concomitant]
  4. HECTOROL [Concomitant]
  5. IRON [Concomitant]
  6. LEVOTHYROXINE SODIUM [Concomitant]
  7. MIRALAX [Concomitant]
  8. PREDNISONE [Concomitant]
  9. TUMS [Concomitant]
  10. SIMVASTATIN [Concomitant]
  11. ALPHAGAN [Concomitant]
  12. AMOXICILLIN [Concomitant]
  13. COLACE [Concomitant]
  14. WARFARIN [Concomitant]
  15. EPOGEN [Concomitant]

REACTIONS (1)
  - PERITONITIS BACTERIAL [None]
